FAERS Safety Report 18327253 (Version 1)
Quarter: 2020Q3

REPORT INFORMATION
  Report Type: Report from Study
  Country: None (occurrence: RO)
  Receive Date: 20200930
  Receipt Date: 20200930
  Transmission Date: 20201103
  Serious: Yes (Hospitalization, Other)
  Sender: FDA-Public Use
  Company Number: RO-ABBVIE-20K-135-3582779-00

PATIENT
  Age: 28 Year
  Sex: Male

DRUGS (2)
  1. XIFIA [Concomitant]
     Indication: INFECTION PROPHYLAXIS
     Route: 048
     Dates: start: 20200916, end: 20200923
  2. HUMIRA [Suspect]
     Active Substance: ADALIMUMAB
     Indication: ANKYLOSING SPONDYLITIS
     Route: 058
     Dates: start: 20171212, end: 20200913

REACTIONS (1)
  - Phimosis [Recovered/Resolved]

NARRATIVE: CASE EVENT DATE: 202009
